FAERS Safety Report 4798978-X (Version None)
Quarter: 2005Q4

REPORT INFORMATION
  Report Type: 
  Country: None (occurrence: None)
  Receive Date: 20051014
  Receipt Date: 20051004
  Transmission Date: 20060501
  Serious: Yes (Other)
  Sender: FDA-Public Use
  Company Number: ZA-ABBOTT-05P-143-0312850-00

PATIENT
  Age: 5 Year
  Sex: Female

DRUGS (1)
  1. SEVOFLURANE [Suspect]
     Indication: TONSILLECTOMY
     Dosage: NOT REPORTED

REACTIONS (2)
  - PROCEDURAL COMPLICATION [None]
  - THERMAL BURN [None]
